FAERS Safety Report 5579210-6 (Version None)
Quarter: 2008Q1

REPORT INFORMATION
  Report Type: 
  Country: None (occurrence: None)
  Receive Date: 20080102
  Receipt Date: 20071227
  Transmission Date: 20080703
  Serious: Yes (Hospitalization)
  Sender: FDA-Public Use
  Company Number: B0501251A

PATIENT
  Age: 18 Year
  Sex: Male

DRUGS (4)
  1. AMOXICILLIN [Suspect]
     Indication: BRONCHITIS
     Dosage: 750MG PER DAY
     Route: 048
     Dates: start: 20070926, end: 20070926
  2. CODEINE [Concomitant]
  3. PLEUMOLYSIN [Concomitant]
  4. UNKNOWN DRUG [Concomitant]

REACTIONS (5)
  - COUGH [None]
  - FACE OEDEMA [None]
  - OEDEMA PERIPHERAL [None]
  - RASH GENERALISED [None]
  - RESPIRATORY DEPTH DECREASED [None]
